FAERS Safety Report 4897194-0 (Version None)
Quarter: 2006Q1

REPORT INFORMATION
  Report Type: 
  Country: None (occurrence: None)
  Receive Date: 20060127
  Receipt Date: 20060116
  Transmission Date: 20060701
  Serious: No
  Sender: FDA-Public Use
  Company Number: 2006-137616-NL

PATIENT
  Sex: Female

DRUGS (1)
  1. MARVELON [Suspect]
     Indication: POLYCYSTIC OVARIES
     Dosage: DF
     Dates: start: 20050101

REACTIONS (2)
  - CONDITION AGGRAVATED [None]
  - PANIC ATTACK [None]
